FAERS Safety Report 20703229 (Version 1)
Quarter: 2022Q2

REPORT INFORMATION
  Report Type: Spontaneous
  Country: ES (occurrence: ES)
  Receive Date: 20220413
  Receipt Date: 20220413
  Transmission Date: 20220721
  Serious: Yes (Other)
  Sender: FDA-Public Use
  Company Number: ES-AEMPS-1151045

PATIENT
  Age: 79 Year
  Sex: Female

DRUGS (5)
  1. FUROSEMIDE [Suspect]
     Active Substance: FUROSEMIDE
     Indication: Cardiac failure
     Dosage: UNK (20.0 MG EVERY 8 HOURS)
     Route: 042
     Dates: start: 20201028, end: 20201029
  2. BECLOMETHASONE DIPROPIONATE\FORMOTEROL FUMARATE [Concomitant]
     Active Substance: BECLOMETHASONE DIPROPIONATE\FORMOTEROL FUMARATE
     Indication: Bronchitis
     Dosage: UNK (1.0 PUFF W/12H)
     Route: 050
     Dates: start: 20200710
  3. EDOXABAN TOSYLATE [Concomitant]
     Active Substance: EDOXABAN TOSYLATE
     Indication: Atrial fibrillation
     Dosage: UNK (60.0 MG DE)
     Route: 048
     Dates: start: 20180505
  4. LYRICA [Concomitant]
     Active Substance: PREGABALIN
     Indication: Pain
     Dosage: UNK (25.0 MG DECOCE)
     Route: 048
     Dates: start: 20201009
  5. ACETAMINOPHEN [Concomitant]
     Active Substance: ACETAMINOPHEN
     Indication: Bronchitis
     Dosage: UNK (1.0 G DECOCE)
     Route: 048
     Dates: start: 20120730

REACTIONS (1)
  - Prerenal failure [Recovered/Resolved]

NARRATIVE: CASE EVENT DATE: 20201028
